FAERS Safety Report 9528449 (Version 1)
Quarter: 2013Q3

REPORT INFORMATION
  Report Type: Spontaneous
  Country: US (occurrence: US)
  Receive Date: 20130917
  Receipt Date: 20130917
  Transmission Date: 20140515
  Serious: No
  Sender: FDA-Public Use
  Company Number: US-B.I. PHARMACEUTICALS,INC./RIDGEFIELD-2013-BI-28065BP

PATIENT
  Age: 70 Year
  Sex: Male

DRUGS (3)
  1. COMBIVENT [Suspect]
     Indication: CHRONIC OBSTRUCTIVE PULMONARY DISEASE
     Dosage: DOSE STRENGTH: 20 MCG / 100 MCG
     Route: 055
     Dates: start: 201304
  2. ADVAIR [Concomitant]
     Indication: CHRONIC OBSTRUCTIVE PULMONARY DISEASE
     Route: 055
  3. ATROVENT NASAL SPRAY 0.06% [Concomitant]
     Indication: RHINITIS ALLERGIC
     Dosage: 168 MCG
     Route: 045

REACTIONS (1)
  - Drug effect incomplete [Not Recovered/Not Resolved]
